FAERS Safety Report 14914104 (Version 1)
Quarter: 2018Q2

REPORT INFORMATION
  Report Type: Spontaneous
  Country: US (occurrence: US)
  Receive Date: 20180501
  Receipt Date: 20180501
  Transmission Date: 20180711
  Serious: No
  Sender: FDA-Public Use
  Company Number: None

PATIENT
  Age: 50 Year
  Sex: Female

DRUGS (1)
  1. PROGRAF [Suspect]
     Active Substance: TACROLIMUS\TACROLIMUS ANHYDROUS

REACTIONS (4)
  - Alopecia [None]
  - Oral herpes [None]
  - Headache [None]
  - Clostridium difficile colitis [None]

NARRATIVE: CASE EVENT DATE: 20180101
